FAERS Safety Report 14590876 (Version 2)
Quarter: 2018Q1

REPORT INFORMATION
  Report Type: Report from Study
  Country: BR (occurrence: BR)
  Receive Date: 20180302
  Receipt Date: 20180313
  Transmission Date: 20180509
  Serious: Yes (Other)
  Sender: FDA-Public Use
  Company Number: BR-BAYER-2018-036618

PATIENT
  Age: 31 Year
  Sex: Female

DRUGS (2)
  1. TAMISA [Concomitant]
     Active Substance: ETHINYL ESTRADIOL\GESTODENE
     Dosage: UNK
     Dates: start: 2010
  2. BETAFERON [Suspect]
     Active Substance: INTERFERON BETA-1B
     Indication: MULTIPLE SCLEROSIS
     Dosage: 1.2 ML, QOD
     Dates: start: 20180221

REACTIONS (8)
  - Chills [Recovered/Resolved]
  - Pyrexia [Recovered/Resolved]
  - Incorrect dose administered [None]
  - Muscular weakness [Recovered/Resolved]
  - Speech disorder [Recovered/Resolved]
  - Muscular weakness [Not Recovered/Not Resolved]
  - Paralysis [Not Recovered/Not Resolved]
  - Dizziness [Recovered/Resolved]

NARRATIVE: CASE EVENT DATE: 20180221
